FAERS Safety Report 9399434 (Version 1)
Quarter: 2013Q3

REPORT INFORMATION
  Report Type: Report from Study
  Country: US (occurrence: US)
  Receive Date: 20130715
  Receipt Date: 20130715
  Transmission Date: 20140515
  Serious: Yes (Hospitalization)
  Sender: FDA-Public Use
  Company Number: US-ROCHE-1183283

PATIENT
  Age: 54 Year
  Sex: Male

DRUGS (2)
  1. DOXEPIN [Concomitant]
     Route: 065
  2. OMALIZUMAB [Suspect]
     Indication: CHRONIC SPONTANEOUS URTICARIA
     Route: 058

REACTIONS (1)
  - Urticaria chronic [Unknown]
